FAERS Safety Report 18307117 (Version 1)
Quarter: 2020Q3

REPORT INFORMATION
  Report Type: Spontaneous
  Country: US (occurrence: US)
  Receive Date: 20200923
  Receipt Date: 20200923
  Transmission Date: 20201103
  Serious: No
  Sender: FDA-Public Use
  Company Number: None

PATIENT
  Age: 66 Year
  Sex: Male

DRUGS (1)
  1. IOHEXOL (IOHEXOL 302MG/ML INJ) [Suspect]
     Active Substance: IOHEXOL
     Indication: DIAGNOSTIC PROCEDURE
     Dates: start: 20200723, end: 20200723

REACTIONS (2)
  - Atrial fibrillation [None]
  - Angina pectoris [None]

NARRATIVE: CASE EVENT DATE: 20200723
